FAERS Safety Report 12258834 (Version 1)
Quarter: 2016Q2

REPORT INFORMATION
  Report Type: Spontaneous
  Country: US (occurrence: US)
  Receive Date: 20160412
  Receipt Date: 20160412
  Transmission Date: 20160815
  Serious: No
  Sender: FDA-Public Use
  Company Number: US-SA-2015SA060927

PATIENT
  Age: 70 Year
  Sex: Female

DRUGS (3)
  1. ALLEGRA [Suspect]
     Active Substance: FEXOFENADINE HYDROCHLORIDE
     Indication: EYE PRURITUS
     Dosage: TAKING FOR 11 DAYS, DOSE: 1 PILL DAILY?FORM: GEL CAPSULE
     Route: 065
  2. ALLEGRA [Suspect]
     Active Substance: FEXOFENADINE HYDROCHLORIDE
     Indication: SNEEZING
     Dosage: TAKING FOR 11 DAYS, DOSE: 1 PILL DAILY?FORM: GEL CAPSULE
     Route: 065
  3. ALLEGRA [Suspect]
     Active Substance: FEXOFENADINE HYDROCHLORIDE
     Indication: MULTIPLE ALLERGIES
     Dosage: TAKING FOR 11 DAYS, DOSE: 1 PILL DAILY?FORM: GEL CAPSULE
     Route: 065

REACTIONS (1)
  - Drug ineffective [Unknown]
